FAERS Safety Report 9240468 (Version 1)
Quarter: 2013Q1

REPORT INFORMATION
  Report Type: Spontaneous
  Country: US (occurrence: None)
  Receive Date: 20121107
  Receipt Date: 20121107
  Transmission Date: 20140127
  Serious: No
  Sender: FDA-Public Use
  Company Number: 2012HGS-003871

PATIENT
  Age: 74 Year
  Sex: Female

DRUGS (11)
  1. BENLYSTA [Suspect]
     Indication: SYSTEMIC LUPUS ERYTHEMATOSUS
     Dosage: 1 IN 28 D
     Route: 041
     Dates: start: 20120328
  2. PREDNISONE (PREDNISONE) (PREDNISONE) [Concomitant]
  3. METFORMIN (METFORMIN) (METFORMIN) [Concomitant]
  4. ZYRTEC (CETIRIZINE HYDROCHLORIDE) (CETIRIZINE HYDROCHLORIDE) [Concomitant]
  5. HYZAAR (HYZAAR) (HYDROCHLOROTHIAZIDE, LOSARTAN POTASSIUM) [Concomitant]
  6. RANITIDINE (RANITIDINE) (RANITIDINE) [Concomitant]
  7. PLAVIX (CLOPIDOGREL BISULFATE) (CLOPIDOGREL BISULFATE) [Concomitant]
  8. METOROLOL (METOPROLOL) (METOPROLOL) [Concomitant]
  9. ASA (ACETYLSALICYLIC ACID) (ACETYLSALICYLIC ACID) [Concomitant]
  10. VITAMIN D 3 (COLECALCIFEROL) (COLECALCIFEROL) [Concomitant]
  11. CALCIUM CITRATE (CALCIUM CITRATE) (CALCIUM CITRATE) [Concomitant]

REACTIONS (2)
  - Oral herpes [None]
  - Migraine [None]
